FAERS Safety Report 10434812 (Version 1)
Quarter: 2014Q3

REPORT INFORMATION
  Report Type: Spontaneous
  Country: US (occurrence: None)
  Receive Date: 20140815
  Receipt Date: 20140815
  Transmission Date: 20150326
  Serious: No
  Sender: FDA-Public Use
  Company Number: 2014TUS003049

PATIENT
  Age: 80 Year
  Sex: Female

DRUGS (5)
  1. LIBRAX /0003330/ (CHLORDIAZEPOXIDE HYDROCHLORIDE, CLIDINIUM BROMIDE) [Concomitant]
  2. SEROQUEL XR [Concomitant]
     Active Substance: QUETIAPINE FUMARATE
  3. TEMAZEPAM. [Concomitant]
     Active Substance: TEMAZEPAM
  4. BRINTELLIX [Suspect]
     Active Substance: VORTIOXETINE HYDROBROMIDE
     Indication: MAJOR DEPRESSION
     Route: 048
  5. VENLAFAXINE XR (VENLAFAXINE HYDROCHLORIDE) [Concomitant]

REACTIONS (1)
  - Rash [None]
